FAERS Safety Report 5477962-7 (Version None)
Quarter: 2007Q4

REPORT INFORMATION
  Report Type: 
  Country: None (occurrence: None)
  Receive Date: 20071005
  Receipt Date: 20070926
  Transmission Date: 20080405
  Serious: Yes (Other)
  Sender: FDA-Public Use
  Company Number: US-JNJFOC-20070905909

PATIENT
  Sex: Female
  Weight: 131.54 kg

DRUGS (3)
  1. DURAGESIC-100 [Suspect]
     Indication: PAIN
     Route: 062
  2. VASOTEC [Concomitant]
     Indication: BLOOD PRESSURE
     Route: 048
  3. XANAX [Concomitant]
     Indication: ANXIETY
     Route: 048

REACTIONS (6)
  - BACK PAIN [None]
  - DEPRESSION [None]
  - DIABETES MELLITUS [None]
  - DRUG INEFFECTIVE [None]
  - DYSPEPSIA [None]
  - WEIGHT DECREASED [None]
